FAERS Safety Report 7240522-1 (Version None)
Quarter: 2011Q1

REPORT INFORMATION
  Report Type: 
  Country: None (occurrence: None)
  Receive Date: 20110124
  Receipt Date: 20110119
  Transmission Date: 20110831
  Serious: No
  Sender: FDA-Public Use
  Company Number: US-PFIZER INC-2011013859

PATIENT
  Sex: Male

DRUGS (6)
  1. CO-Q-10 [Concomitant]
     Dosage: 100MG, UNK
  2. GLUCOSAMINE WITH MSM [Concomitant]
     Dosage: UNK
  3. FISH OIL [Concomitant]
     Dosage: UNK
  4. MOTRIN [Concomitant]
     Dosage: UNK,OCCASSIONAL
  5. MAGNESIUM [Concomitant]
     Dosage: UNK
  6. LIPITOR [Suspect]
     Dosage: 40 MG, UNK

REACTIONS (2)
  - PAIN IN EXTREMITY [None]
  - MYALGIA [None]
